FAERS Safety Report 6011514-5 (Version None)
Quarter: 2008Q4

REPORT INFORMATION
  Report Type: 
  Country: None (occurrence: None)
  Receive Date: 20081218
  Receipt Date: 20081008
  Transmission Date: 20090506
  Serious: No
  Sender: FDA-Public Use
  Company Number: US-ASTRAZENECA-2008UW18013

PATIENT
  Age: 61 Year
  Sex: Female
  Weight: 72.6 kg

DRUGS (4)
  1. CRESTOR [Suspect]
     Indication: BLOOD CHOLESTEROL INCREASED
     Dosage: 20 MG
     Route: 048
     Dates: start: 20080724
  2. LEVOXYL [Concomitant]
  3. LISINOPRIL [Concomitant]
     Dosage: 10/12.5 DAILY
  4. VITAMIN D [Concomitant]

REACTIONS (3)
  - DYSSOMNIA [None]
  - FACIAL PAIN [None]
  - MUSCLE SPASMS [None]
